FAERS Safety Report 8920347 (Version 3)
Quarter: 2013Q4

REPORT INFORMATION
  Report Type: Report from Study
  Country: DE (occurrence: DE)
  Receive Date: 20121122
  Receipt Date: 20131011
  Transmission Date: 20140711
  Serious: Yes (Death)
  Sender: FDA-Public Use
  Company Number: DE-ROCHE-1158666

PATIENT
  Age: 63 Year
  Sex: Female
  Weight: 108 kg

DRUGS (8)
  1. BEVACIZUMAB [Suspect]
     Indication: BREAST CANCER
     Route: 065
     Dates: start: 20100706, end: 20110309
  2. BEVACIZUMAB [Suspect]
     Route: 042
     Dates: start: 20100706, end: 20100706
  3. BEVACIZUMAB [Suspect]
     Route: 042
     Dates: start: 20110309, end: 20110309
  4. VINORELBINE [Suspect]
     Indication: BREAST CANCER
     Route: 042
     Dates: start: 20121002, end: 20121026
  5. PACLITAXEL [Concomitant]
     Indication: BREAST CANCER
     Route: 042
     Dates: start: 20100706, end: 20101109
  6. RAMIPRIL [Concomitant]
     Route: 048
     Dates: start: 20100818
  7. AMLODIPIN [Concomitant]
     Route: 048
     Dates: end: 20100913
  8. B6 VICOTRAT [Concomitant]
     Route: 048
     Dates: start: 20100810

REACTIONS (2)
  - Pulmonary embolism [Fatal]
  - Malignant neoplasm progression [Fatal]
